FAERS Safety Report 5142623-0 (Version None)
Quarter: 2006Q4

REPORT INFORMATION
  Report Type: 
  Country: None (occurrence: None)
  Receive Date: 20061027
  Receipt Date: 20061016
  Transmission Date: 20070319
  Serious: Yes (Other)
  Sender: FDA-Public Use
  Company Number: VNL_0195_2006

PATIENT
  Age: 60 Year
  Sex: Male
  Weight: 90.7194 kg

DRUGS (11)
  1. APOKYN [Suspect]
     Indication: PARKINSON'S DISEASE
     Dosage: 0.2 MG PRN SC
     Route: 058
     Dates: start: 20060811, end: 20060812
  2. APOKYN [Suspect]
     Indication: PARKINSON'S DISEASE
     Dosage: 0.2 MG ONCE SC
     Route: 058
     Dates: start: 20060825, end: 20060825
  3. CARBIDOPA-LEVADOPA [Concomitant]
  4. PERMAX [Concomitant]
  5. COMTAN [Concomitant]
  6. DETROL LA [Concomitant]
  7. AMANTADINE HCL [Concomitant]
  8. SINEMET [Concomitant]
  9. MIRAPEX [Concomitant]
  10. ASPIRIN [Concomitant]
  11. ALTACE [Concomitant]

REACTIONS (5)
  - CEREBRAL ATROPHY [None]
  - CEREBROVASCULAR ACCIDENT [None]
  - HYPOTENSION [None]
  - LACUNAR INFARCTION [None]
  - LOW DENSITY LIPOPROTEIN INCREASED [None]
